FAERS Safety Report 12574108 (Version 3)
Quarter: 2017Q1

REPORT INFORMATION
  Report Type: Spontaneous
  Country: US (occurrence: US)
  Receive Date: 20160720
  Receipt Date: 20170302
  Transmission Date: 20170428
  Serious: Yes (Other)
  Sender: FDA-Public Use
  Company Number: US-TEVA-670266USA

PATIENT
  Sex: Female

DRUGS (18)
  1. XULANE [Concomitant]
     Active Substance: ETHINYL ESTRADIOL\NORELGESTROMIN
     Indication: CONTRACEPTION
  2. NAPROXEN. [Concomitant]
     Active Substance: NAPROXEN
  3. DHEA [Concomitant]
     Active Substance: PRASTERONE
  4. NATURE-THROID [Concomitant]
     Active Substance: THYROID, PORCINE
  5. ZOFRAN [Concomitant]
     Active Substance: ONDANSETRON HYDROCHLORIDE
  6. PROGESTERONE. [Concomitant]
     Active Substance: PROGESTERONE
  7. TESTOSTERONE. [Concomitant]
     Active Substance: TESTOSTERONE
  8. VALTREX [Concomitant]
     Active Substance: VALACYCLOVIR HYDROCHLORIDE
  9. VITAMIN B12 [Concomitant]
     Active Substance: CYANOCOBALAMIN
  10. VITAMIN D [Concomitant]
     Active Substance: CHOLECALCIFEROL
  11. VITAMIN C [Concomitant]
     Active Substance: ASCORBIC ACID
  12. ZECUITY [Suspect]
     Active Substance: SUMATRIPTAN SUCCINATE
     Indication: HEADACHE
     Route: 062
     Dates: start: 201602
  13. TIZANIDINE. [Concomitant]
     Active Substance: TIZANIDINE
  14. SUMATRIPTAN SUCCINATE. [Concomitant]
     Active Substance: SUMATRIPTAN SUCCINATE
  15. SELENIUM [Concomitant]
     Active Substance: SELENIUM
  16. SINGULAIR [Concomitant]
     Active Substance: MONTELUKAST SODIUM
  17. CLONAZEPAM. [Concomitant]
     Active Substance: CLONAZEPAM
  18. RELPAX [Concomitant]
     Active Substance: ELETRIPTAN HYDROBROMIDE

REACTIONS (17)
  - Application site exfoliation [Recovered/Resolved]
  - Application site urticaria [Recovered/Resolved]
  - Application site burn [Recovered/Resolved]
  - Administration site scab [Recovered/Resolved]
  - Application site erosion [Recovered/Resolved]
  - Application site discomfort [Recovered/Resolved]
  - Application site discolouration [Recovered/Resolved]
  - Application site paraesthesia [Recovered/Resolved]
  - Drug effect incomplete [Unknown]
  - Application site papules [Recovered/Resolved]
  - Application site erythema [Recovered/Resolved]
  - Application site pruritus [Recovered/Resolved]
  - Application site pain [Recovered/Resolved]
  - Incorrect drug administration duration [Unknown]
  - Chemical injury [Not Recovered/Not Resolved]
  - Application site inflammation [Recovered/Resolved]
  - Application site irritation [Recovered/Resolved]
